FAERS Safety Report 9022249 (Version 1)
Quarter: 2013Q1

REPORT INFORMATION
  Report Type: Spontaneous
  Country: US (occurrence: US)
  Receive Date: 20130118
  Receipt Date: 20130118
  Transmission Date: 20140127
  Serious: Yes (Death, Other)
  Sender: FDA-Public Use
  Company Number: US-UCBSA-075072

PATIENT
  Age: 42 Year
  Sex: Female

DRUGS (5)
  1. ALPRAZOLAM [Suspect]
  2. MORPHINE [Suspect]
  3. HYDROXYCHLOROQUINE [Suspect]
  4. PROMETHAZINE [Suspect]
  5. METHADONE [Suspect]

REACTIONS (1)
  - Drug abuse [Fatal]
